FAERS Safety Report 5429595-6 (Version None)
Quarter: 2007Q3

REPORT INFORMATION
  Report Type: 
  Country: None (occurrence: None)
  Receive Date: 20070829
  Receipt Date: 20070817
  Transmission Date: 20080115
  Serious: Yes (Hospitalization)
  Sender: FDA-Public Use
  Company Number: GB-ROCHE-512334

PATIENT
  Age: 57 Year
  Sex: Male
  Weight: 108 kg

DRUGS (3)
  1. ORLISTAT [Suspect]
     Indication: OBESITY
     Route: 048
     Dates: start: 20070211
  2. UNSPECIFIED DRUG [Suspect]
     Indication: DRUG USE FOR UNKNOWN INDICATION
     Dosage: INDICATION: TO PROTECT THE KIDNEYS. GIVEN AFTER THE CT SCAN.
     Route: 065
     Dates: start: 20070807
  3. UNSPECIFIED DRUGS [Concomitant]
     Dosage: SEVERAL UNSPECIFIED DRUGS TAKEN CONCOMITANTLY.

REACTIONS (2)
  - CEREBROVASCULAR ACCIDENT [None]
  - HYPERSENSITIVITY [None]
